FAERS Safety Report 7421415-3 (Version None)
Quarter: 2011Q2

REPORT INFORMATION
  Report Type: 
  Country: None (occurrence: None)
  Receive Date: 20110418
  Receipt Date: 20110407
  Transmission Date: 20111010
  Serious: Yes (Hospitalization, Other)
  Sender: FDA-Public Use
  Company Number: US-ASTRAZENECA-2011SE20437

PATIENT
  Age: 51 Year
  Sex: Female

DRUGS (2)
  1. PROTONIX [Concomitant]
  2. NEXIUM [Suspect]
     Route: 048

REACTIONS (7)
  - STENT PLACEMENT [None]
  - DYSPEPSIA [None]
  - ABDOMINAL DISCOMFORT [None]
  - VOMITING [None]
  - DYSPHAGIA [None]
  - MYOCARDIAL INFARCTION [None]
  - HIATUS HERNIA [None]
